FAERS Safety Report 8404701 (Version 5)
Quarter: 2013Q2

REPORT INFORMATION
  Report Type: Spontaneous
  Country: US (occurrence: US)
  Receive Date: 20120214
  Receipt Date: 20130607
  Transmission Date: 20140414
  Serious: Yes (Other)
  Sender: FDA-Public Use
  Company Number: US-PFIZER INC-2012034478

PATIENT
  Age: 44 Year
  Sex: Female
  Weight: 77.1 kg

DRUGS (6)
  1. LYRICA [Suspect]
     Indication: NERVE COMPRESSION
     Dosage: 150 MG, 2X/DAY
     Route: 048
     Dates: start: 2011, end: 2011
  2. LYRICA [Suspect]
     Indication: NERVE INJURY
  3. LORCET [Concomitant]
     Indication: BACK PAIN
     Dosage: [HYDROCODONE 10MG]/[ACETAMINOPHEN 650MG], AS NEEDED
  4. ELAVIL [Concomitant]
     Indication: RESTLESSNESS
     Dosage: UNK
  5. METHADONE [Concomitant]
     Indication: BACK PAIN
     Dosage: 10 MG, AS NEEDED
  6. KLONOPIN [Concomitant]
     Indication: ANXIETY
     Dosage: 1 MG, 1X/DAY

REACTIONS (7)
  - Impaired work ability [Unknown]
  - Drug withdrawal syndrome [Unknown]
  - Irritability [Unknown]
  - Pain [Unknown]
  - Crying [Unknown]
  - Feeling abnormal [Unknown]
  - Grip strength decreased [Unknown]
